FAERS Safety Report 5778837-6 (Version None)
Quarter: 2008Q2

REPORT INFORMATION
  Report Type: 
  Country: None (occurrence: None)
  Receive Date: 20080619
  Receipt Date: 20080609
  Transmission Date: 20081010
  Serious: Yes (Other)
  Sender: FDA-Public Use
  Company Number: JP-ROCHE-567865

PATIENT

DRUGS (2)
  1. RIBAVIRIN [Suspect]
     Route: 065
     Dates: start: 20070301
  2. PEGASYS [Suspect]
     Route: 065

REACTIONS (1)
  - GASTRIC CANCER [None]
